FAERS Safety Report 7458743-1 (Version None)
Quarter: 2011Q2

REPORT INFORMATION
  Report Type: 
  Country: None (occurrence: None)
  Receive Date: 20110504
  Receipt Date: 20110503
  Transmission Date: 20111010
  Serious: Yes (Life-Threatening)
  Sender: FDA-Public Use
  Company Number: PHHY2011GB36959

PATIENT
  Age: 80 Year
  Sex: Male

DRUGS (6)
  1. CYCLOPHOSPHAMIDE [Concomitant]
     Dosage: UNK UKN, UNK
  2. DOMPERIDONE [Concomitant]
     Dosage: UNK UKN, UNK
  3. COTRIM [Concomitant]
     Dosage: UNK UKN, UNK
  4. RITUXIMAB [Concomitant]
     Dosage: UNK UKN, UNK
  5. FLUDARABINE PHOSPHATE [Suspect]
     Indication: NON-HODGKIN'S LYMPHOMA
     Dosage: 50 MG, QD
     Route: 059
     Dates: start: 20100401, end: 20101001
  6. ACICLOVIR [Concomitant]
     Dosage: UNK UKN, UNK

REACTIONS (3)
  - NEUTROPHIL COUNT DECREASED [None]
  - WHITE BLOOD CELL COUNT DECREASED [None]
  - AGRANULOCYTOSIS [None]
